FAERS Safety Report 16686468 (Version 1)
Quarter: 2019Q3

REPORT INFORMATION
  Report Type: Spontaneous
  Country: IT (occurrence: IT)
  Receive Date: 20190809
  Receipt Date: 20190809
  Transmission Date: 20191004
  Serious: Yes (Hospitalization)
  Sender: FDA-Public Use
  Company Number: IT-TEVA-2019-IT-1090348

PATIENT
  Age: 77 Year
  Sex: Female

DRUGS (3)
  1. EUTIROX 50 MICROGRAMMI COMPRESSE [Concomitant]
     Active Substance: LEVOTHYROXINE SODIUM
     Indication: HYPOTHYROIDISM
     Dosage: 50 MICROGRAM/DAYS
     Route: 048
  2. SIMVASTATIN. [Concomitant]
     Active Substance: SIMVASTATIN
     Indication: DYSLIPIDAEMIA
     Dosage: 20 MILLIGRAM/DAYS
     Route: 048
  3. CLOPIDOGREL [Suspect]
     Active Substance: CLOPIDOGREL BISULFATE
     Dosage: 75 MG/DAYS
     Route: 048

REACTIONS (2)
  - Rectal haemorrhage [Recovering/Resolving]
  - Abdominal pain lower [Recovering/Resolving]

NARRATIVE: CASE EVENT DATE: 20190715
